FAERS Safety Report 20371099 (Version 1)
Quarter: 2022Q1

REPORT INFORMATION
  Report Type: Report from Study
  Country: CN (occurrence: CN)
  Receive Date: 20220124
  Receipt Date: 20220124
  Transmission Date: 20220423
  Serious: Yes (Other)
  Sender: FDA-Public Use
  Company Number: CN-NOVARTISPH-NVSC2022CN007040

PATIENT
  Age: 51 Year
  Sex: Male

DRUGS (17)
  1. ENTRESTO [Suspect]
     Active Substance: SACUBITRIL\VALSARTAN
     Indication: Cardiac failure chronic
     Dosage: 50 MG
     Route: 048
     Dates: start: 20201124, end: 20201129
  2. ENTRESTO [Suspect]
     Active Substance: SACUBITRIL\VALSARTAN
     Dosage: 75 MG
     Route: 048
     Dates: start: 20201130, end: 20201209
  3. ENTRESTO [Suspect]
     Active Substance: SACUBITRIL\VALSARTAN
     Dosage: 50 MG
     Route: 048
     Dates: start: 20201210, end: 20210211
  4. ENTRESTO [Suspect]
     Active Substance: SACUBITRIL\VALSARTAN
     Dosage: 25 MG
     Route: 048
     Dates: start: 20211025, end: 20211108
  5. ROSUVASTATIN CALCIUM [Concomitant]
     Active Substance: ROSUVASTATIN CALCIUM
     Indication: Pre-existing disease
     Dosage: 10 MG, UNKNOWN
     Route: 048
     Dates: start: 20201124
  6. ATORVASTATIN CALCIUM [Concomitant]
     Active Substance: ATORVASTATIN CALCIUM
     Indication: Pre-existing disease
     Dosage: 20 MG, UNKNOWN
     Route: 065
     Dates: start: 20201124
  7. CELECOXIB [Concomitant]
     Active Substance: CELECOXIB
     Indication: Pre-existing disease
     Dosage: 200 MG, UNKNOWN
     Route: 048
     Dates: start: 20201127
  8. POTASSIUM CHLORIDE [Concomitant]
     Active Substance: POTASSIUM CHLORIDE
     Indication: Pre-existing disease
     Dosage: 1 G, UNKNOWN
     Route: 048
     Dates: start: 20201127
  9. ASPIRIN [Concomitant]
     Active Substance: ASPIRIN
     Indication: Pre-existing disease
     Dosage: 100 MG, UNKNOWN
     Route: 048
     Dates: start: 20201124, end: 20211025
  10. IVABRADINE HYDROCHLORIDE [Concomitant]
     Active Substance: IVABRADINE HYDROCHLORIDE
     Indication: Pre-existing disease
     Dosage: 2.5 MG, UNKNOWN
     Route: 048
     Dates: start: 20201124
  11. TICAGRELOR [Concomitant]
     Active Substance: TICAGRELOR
     Indication: Pre-existing disease
     Dosage: 90 MG
     Route: 048
     Dates: start: 20201124
  12. FOLIC ACID [Concomitant]
     Active Substance: FOLIC ACID
     Indication: Pre-existing disease
     Dosage: 5 MG
     Route: 048
     Dates: start: 20201126, end: 20201202
  13. METOPROLOL SUCCINATE [Concomitant]
     Active Substance: METOPROLOL SUCCINATE
     Indication: Pre-existing disease
     Dosage: 23.75 MG
     Route: 048
     Dates: start: 20201124, end: 20201202
  14. FEBUXOSTAT [Concomitant]
     Active Substance: FEBUXOSTAT
     Indication: Pre-existing disease
     Dosage: 40 MG
     Route: 048
     Dates: start: 20201125, end: 20201202
  15. SPIRONOLACTONE [Concomitant]
     Active Substance: SPIRONOLACTONE
     Indication: Pre-existing disease
     Dosage: 20 MG, UNKNOWN
     Route: 048
     Dates: start: 20201130, end: 20201202
  16. AMIODARONE HYDROCHLORIDE [Concomitant]
     Active Substance: AMIODARONE HYDROCHLORIDE
     Indication: Pre-existing disease
     Dosage: 0.2 G
     Route: 048
     Dates: start: 20201130, end: 20201202
  17. FUROSEMIDE [Concomitant]
     Active Substance: FUROSEMIDE
     Indication: Pre-existing disease
     Dosage: 20 MG, UNKNOWN
     Route: 042
     Dates: start: 20201130, end: 20201202

REACTIONS (4)
  - Hypokalaemia [Not Recovered/Not Resolved]
  - Wrong technique in product usage process [Recovered/Resolved]
  - Wrong technique in product usage process [Recovered/Resolved]
  - Wrong technique in product usage process [Unknown]

NARRATIVE: CASE EVENT DATE: 20201130
